FAERS Safety Report 11791788 (Version 1)
Quarter: 2015Q4

REPORT INFORMATION
  Report Type: Spontaneous
  Country: BR (occurrence: BR)
  Receive Date: 20151201
  Receipt Date: 20151201
  Transmission Date: 20160305
  Serious: Yes (Life-Threatening, Hospitalization)
  Sender: FDA-Public Use
  Company Number: BR-PFIZER INC-2015365916

PATIENT
  Age: 46 Year
  Sex: Female

DRUGS (13)
  1. RAPAMUNE [Suspect]
     Active Substance: SIROLIMUS
     Dosage: 6 MG, DAILY
     Route: 048
     Dates: start: 20151023, end: 20151023
  2. NYSTATIN. [Concomitant]
     Active Substance: NYSTATIN
  3. OMEPRAZOLE. [Concomitant]
     Active Substance: OMEPRAZOLE
     Dosage: 20 MG, UNK
  4. RAPAMUNE [Suspect]
     Active Substance: SIROLIMUS
     Dosage: UNK
     Route: 048
     Dates: start: 20151023, end: 20151023
  5. ERYTHROPOIETIN [Concomitant]
     Active Substance: ERYTHROPOIETIN
     Dosage: 4000 UNK, UNK
  6. ACETYLSALICYLIC ACID [Concomitant]
     Active Substance: ASPIRIN
  7. TACROLIMUS. [Concomitant]
     Active Substance: TACROLIMUS
     Dosage: 5 MG, UNK
  8. IRON OXIDES [Concomitant]
     Active Substance: FERRIC OXIDE RED
  9. SIMVASTATIN. [Concomitant]
     Active Substance: SIMVASTATIN
     Dosage: 20 MG, UNK
  10. GANCICLOVIR. [Concomitant]
     Active Substance: GANCICLOVIR
  11. AZATHIOPRINE. [Concomitant]
     Active Substance: AZATHIOPRINE
     Dosage: 50 MG, UNK
  12. TACROLIMUS. [Concomitant]
     Active Substance: TACROLIMUS
     Dosage: 1 MG, UNK
  13. PREDNISONE. [Concomitant]
     Active Substance: PREDNISONE
     Dosage: 20 MG, UNK

REACTIONS (3)
  - Drug dispensing error [Unknown]
  - Feeling abnormal [Unknown]
  - Wrong drug administered [Unknown]
